FAERS Safety Report 8337878-5 (Version None)
Quarter: 2012Q2

REPORT INFORMATION
  Report Type: 
  Country: None (occurrence: None)
  Receive Date: 20120504
  Receipt Date: 20120424
  Transmission Date: 20120825
  Serious: Yes (Hospitalization)
  Sender: FDA-Public Use
  Company Number: US-ELI_LILLY_AND_COMPANY-US201203002660

PATIENT
  Sex: Female
  Weight: 54.875 kg

DRUGS (29)
  1. AMITIZA [Concomitant]
     Dosage: 24 UG, BID
  2. FERROUS SULFATE TAB [Concomitant]
     Dosage: 345 MG, UNK
  3. POTASSIUM CHLORIDE [Concomitant]
  4. WOMEN'S MULTI [Concomitant]
     Dosage: UNK
  5. BORON [Concomitant]
  6. TRAMADOL HCL [Concomitant]
     Dosage: 50 MG, UNK
  7. WARFARIN SODIUM [Concomitant]
     Dosage: 5 MG, 3/W
  8. ALPRAZOLAM [Concomitant]
     Dosage: 0.5 UNK, OTHER
  9. FUROSEMIDE [Concomitant]
     Dosage: 40 MG, UNK
  10. MAGNESIUM [Concomitant]
  11. KLOR-CON M20 [Concomitant]
     Dosage: 20 MEQ, UNK
  12. PROPAFENONE HCL [Concomitant]
     Dosage: 150 MG, BID
  13. FORTEO [Suspect]
     Dosage: 20 UG, 2/W
     Route: 058
  14. PREDNISONE TAB [Concomitant]
     Indication: CHRONIC OBSTRUCTIVE PULMONARY DISEASE
     Dosage: 10 MG, QD
     Route: 048
  15. OSCAL                              /00751519/ [Concomitant]
  16. ZINC SULFATE [Concomitant]
  17. BUDESONIDE [Concomitant]
  18. SENNA SPP. [Concomitant]
     Dosage: 8.6 MG, BID
  19. VITAMIN B1 TAB [Concomitant]
  20. MULTI-VITAMIN [Concomitant]
  21. ACTONEL [Concomitant]
     Dosage: 150 MG, MONTHLY (1/M)
     Dates: end: 20120207
  22. FORTEO [Suspect]
     Indication: OSTEOPOROSIS
     Dosage: 20 UG, QD
     Route: 058
     Dates: end: 20120306
  23. WARFARIN SODIUM [Concomitant]
     Indication: ATRIAL FIBRILLATION
     Dosage: 2.5 MG, 4/W
  24. MIRALAX [Concomitant]
     Dosage: 17 G, QD
  25. VITAMIN D [Concomitant]
     Dosage: 2000 IU, QD
  26. ALPRAZOLAM [Concomitant]
     Dosage: 0.5 MG, EACH EVENING
  27. OMEPRAZOLE [Concomitant]
  28. MANGANESE [Concomitant]
  29. GAS-X [Concomitant]
     Dosage: 125 MG, QID

REACTIONS (8)
  - HYPERCALCAEMIA [None]
  - METABOLIC ENCEPHALOPATHY [None]
  - PNEUMONIA [None]
  - COMPRESSION FRACTURE [None]
  - DRUG PRESCRIBING ERROR [None]
  - HYPOCALCAEMIA [None]
  - PRODUCTIVE COUGH [None]
  - HYPOVOLAEMIA [None]
